FAERS Safety Report 21719344 (Version 1)
Quarter: 2022Q4

REPORT INFORMATION
  Report Type: Report from Study
  Country: US (occurrence: US)
  Receive Date: 20221213
  Receipt Date: 20221213
  Transmission Date: 20230113
  Serious: Yes (Other)
  Sender: FDA-Public Use
  Company Number: US-ABBVIE-4228170

PATIENT
  Sex: Female

DRUGS (2)
  1. HUMIRA [Suspect]
     Active Substance: ADALIMUMAB
     Indication: Product used for unknown indication
     Dosage: FREQUENCY TEXT: 2 PER 28 DAYS
     Route: 058
     Dates: start: 20220821, end: 20220901
  2. HUMIRA [Suspect]
     Active Substance: ADALIMUMAB
     Dosage: FREQUENCY TEXT: 2 PER 28 DAYS?FIRST ADMIN DATE: 2022
     Route: 058
     Dates: end: 202210

REACTIONS (3)
  - Blindness [Unknown]
  - Alopecia [Unknown]
  - Abdominal pain [Unknown]
